FAERS Safety Report 7640095-5 (Version None)
Quarter: 2011Q3

REPORT INFORMATION
  Report Type: 
  Country: None (occurrence: None)
  Receive Date: 20110727
  Receipt Date: 20110720
  Transmission Date: 20111222
  Serious: Yes (Hospitalization, Other)
  Sender: FDA-Public Use
  Company Number: FR-BRISTOL-MYERS SQUIBB COMPANY-15918022

PATIENT
  Age: 61 Year
  Sex: Male

DRUGS (7)
  1. ONGLYZA [Suspect]
     Indication: TYPE 2 DIABETES MELLITUS
     Dosage: 1DF=6 TABLETS 5MG TAB
     Dates: start: 20110101
  2. AMITRIPTYLINE HCL [Concomitant]
     Indication: DEPRESSION
  3. ESCITALOPRAM OXALATE [Concomitant]
     Indication: DEPRESSION
  4. EQUANIL [Suspect]
     Dosage: 1DF=5 TABLETS
  5. ALCOHOL [Suspect]
  6. GLUCOPHAGE [Concomitant]
     Indication: TYPE 2 DIABETES MELLITUS
  7. XANAX [Concomitant]
     Indication: DEPRESSION

REACTIONS (3)
  - SUICIDE ATTEMPT [None]
  - SOMNOLENCE [None]
  - COGNITIVE DISORDER [None]
